FAERS Safety Report 4310202-0 (Version None)
Quarter: 2004Q1

REPORT INFORMATION
  Report Type: 
  Country: None (occurrence: None)
  Receive Date: 20040301
  Receipt Date: 20040301
  Transmission Date: 20041129
  Serious: Yes (Death)
  Sender: FDA-Public Use
  Company Number: None

PATIENT
  Age: 95 Year
  Sex: Male
  Weight: 77.1115 kg

DRUGS (12)
  1. ROSIGLITAZONE 4 MG GLAXO [Suspect]
     Indication: DIABETES MELLITUS
     Dosage: 4 MG DAILY ORAL
     Route: 048
     Dates: start: 20031217, end: 20040210
  2. DONEPEZIL [Concomitant]
  3. OLANZAPINE [Concomitant]
  4. REPAGINIDE [Concomitant]
  5. FOSINOPRIL SODIUM [Concomitant]
  6. CELECOXIB [Concomitant]
  7. ZINC SULFATE [Concomitant]
  8. AMLODIPINE [Concomitant]
  9. LEVOFLOXACIN [Concomitant]
  10. ALBUTEROL INHAL [Concomitant]
  11. FUROSEMIDE [Concomitant]
  12. POTASSIUM CHLORIDE [Concomitant]

REACTIONS (1)
  - CARDIAC FAILURE CONGESTIVE [None]
